FAERS Safety Report 8456375-X (Version None)
Quarter: 2012Q2

REPORT INFORMATION
  Report Type: 
  Country: None (occurrence: None)
  Receive Date: 20120621
  Receipt Date: 20120614
  Transmission Date: 20120825
  Serious: Yes (Hospitalization)
  Sender: FDA-Public Use
  Company Number: TW-GLAXOSMITHKLINE-B0809214A

PATIENT
  Age: 58 Year
  Sex: Male
  Weight: 75 kg

DRUGS (5)
  1. TELMISARTAN [Concomitant]
  2. HUMULIN R [Concomitant]
  3. ISOPHANE [Concomitant]
  4. VALSARTAN [Concomitant]
  5. AVANDIA [Suspect]
     Indication: DIABETIC VASCULAR DISORDER
     Dosage: 2MG PER DAY
     Route: 065
     Dates: start: 20070105, end: 20070509

REACTIONS (3)
  - ALANINE AMINOTRANSFERASE INCREASED [None]
  - NAUSEA [None]
  - DECREASED APPETITE [None]
